FAERS Safety Report 5803007-2 (Version None)
Quarter: 2008Q2

REPORT INFORMATION
  Report Type: 
  Country: None (occurrence: None)
  Receive Date: 20080625
  Receipt Date: 20070927
  Transmission Date: 20081010
  Serious: Yes (Hospitalization)
  Sender: FDA-Public Use
  Company Number: DSU-2007-00662

PATIENT
  Age: 69 Year
  Sex: Male
  Weight: 153.7694 kg

DRUGS (7)
  1. BENICAR [Suspect]
     Indication: HYPERTENSION
     Dosage: 20 MG (20 MG, 1 IN 1 D), PER ORAL
     Route: 048
     Dates: end: 20070926
  2. COUMADIN [Concomitant]
  3. AMIODARONE HCL [Concomitant]
  4. LASIX [Concomitant]
  5. ASPIRIN [Concomitant]
  6. COREG (CARVEDILOL) (CARVEDILOL) [Concomitant]
  7. ALDACTONE [Concomitant]

REACTIONS (1)
  - ANGIOEDEMA [None]
